FAERS Safety Report 21916925 (Version 1)
Quarter: 2023Q1

REPORT INFORMATION
  Report Type: Spontaneous
  Country: DE (occurrence: DE)
  Receive Date: 20230126
  Receipt Date: 20230126
  Transmission Date: 20230418
  Serious: Yes (Hospitalization, Other)
  Sender: FDA-Public Use
  Company Number: None

PATIENT
  Age: 44 Year
  Sex: Female

DRUGS (7)
  1. DOTAREM [Suspect]
     Active Substance: GADOTERATE MEGLUMINE
     Indication: Magnetic resonance imaging
     Route: 065
  2. DOTAREM [Suspect]
     Active Substance: GADOTERATE MEGLUMINE
     Route: 065
     Dates: start: 20200820, end: 20200820
  3. DOTAREM [Suspect]
     Active Substance: GADOTERATE MEGLUMINE
     Route: 065
     Dates: start: 20200825, end: 20200825
  4. DOTAREM [Suspect]
     Active Substance: GADOTERATE MEGLUMINE
     Route: 065
     Dates: start: 20220620, end: 20220620
  5. DOTAREM [Suspect]
     Active Substance: GADOTERATE MEGLUMINE
     Route: 065
  6. DOTAREM [Suspect]
     Active Substance: GADOTERATE MEGLUMINE
     Route: 065
  7. GADOLINIUM [Suspect]
     Active Substance: GADOLINIUM
     Indication: Product used for unknown indication
     Route: 065

REACTIONS (27)
  - Hypoaesthesia [Not Recovered/Not Resolved]
  - Fatigue [Not Recovered/Not Resolved]
  - Myalgia [Not Recovered/Not Resolved]
  - Skin disorder [Not Recovered/Not Resolved]
  - Angiopathy [Not Recovered/Not Resolved]
  - Arrhythmia [Not Recovered/Not Resolved]
  - Arthralgia [Not Recovered/Not Resolved]
  - Unevaluable event [Not Recovered/Not Resolved]
  - Anaemia [Not Recovered/Not Resolved]
  - Muscle twitching [Not Recovered/Not Resolved]
  - Dyspepsia [Not Recovered/Not Resolved]
  - Contrast media toxicity [Unknown]
  - Sick leave [Not Recovered/Not Resolved]
  - Mobility decreased [Unknown]
  - Condition aggravated [Unknown]
  - Paraesthesia [Not Recovered/Not Resolved]
  - Angiosclerosis [Not Recovered/Not Resolved]
  - Cognitive disorder [Not Recovered/Not Resolved]
  - Dyspnoea [Not Recovered/Not Resolved]
  - Alopecia [Not Recovered/Not Resolved]
  - Tooth discolouration [Not Recovered/Not Resolved]
  - Pain [Not Recovered/Not Resolved]
  - Sleep disorder [Not Recovered/Not Resolved]
  - Tremor [Not Recovered/Not Resolved]
  - Ear, nose and throat disorder [Not Recovered/Not Resolved]
  - Lower urinary tract symptoms [Not Recovered/Not Resolved]
  - Product residue present [Unknown]

NARRATIVE: CASE EVENT DATE: 20200801
